FAERS Safety Report 6943664-0 (Version None)
Quarter: 2010Q3

REPORT INFORMATION
  Report Type: 
  Country: None (occurrence: None)
  Receive Date: 20100826
  Receipt Date: 20100503
  Transmission Date: 20110219
  Serious: Yes (Other)
  Sender: FDA-Public Use
  Company Number: PHEH2006US11910

PATIENT
  Sex: Female

DRUGS (1)
  1. VIVELLE-DOT [Suspect]
     Indication: HORMONE REPLACEMENT THERAPY
     Dosage: 0.05 MG/DAY, TWICE WEEKLY
     Route: 062
     Dates: start: 20050101

REACTIONS (10)
  - CATARACT [None]
  - CATARACT OPERATION [None]
  - EYE DISORDER [None]
  - EYE LASER SURGERY [None]
  - EYE OPERATION [None]
  - HOT FLUSH [None]
  - LASER THERAPY [None]
  - RETINAL DETACHMENT [None]
  - RETINOSCHISIS [None]
  - VISUAL IMPAIRMENT [None]
